FAERS Safety Report 21995198 (Version 1)
Quarter: 2023Q1

REPORT INFORMATION
  Report Type: Spontaneous
  Country: US (occurrence: US)
  Receive Date: 20230215
  Receipt Date: 20230215
  Transmission Date: 20230417
  Serious: No
  Sender: FDA-Public Use
  Company Number: US-PFIZER INC-202300066519

PATIENT
  Age: 80 Year
  Sex: Female

DRUGS (3)
  1. PAXLOVID [Suspect]
     Active Substance: NIRMATRELVIR\RITONAVIR
     Indication: COVID-19 treatment
     Dosage: UNK
     Dates: start: 20230210
  2. TRAMADOL [Suspect]
     Active Substance: TRAMADOL
  3. MUCINEX [Suspect]
     Active Substance: GUAIFENESIN

REACTIONS (8)
  - Erythema [Unknown]
  - Dizziness [Unknown]
  - Feeling abnormal [Unknown]
  - Fall [Unknown]
  - Vomiting [Unknown]
  - Asthenia [Unknown]
  - Illness [Unknown]
  - Off label use [Unknown]

NARRATIVE: CASE EVENT DATE: 20230201
